FAERS Safety Report 17799523 (Version 1)
Quarter: 2020Q2

REPORT INFORMATION
  Report Type: Spontaneous
  Country: US (occurrence: US)
  Receive Date: 20200518
  Receipt Date: 20200518
  Transmission Date: 20200714
  Serious: No
  Sender: FDA-Public Use
  Company Number: US-THERAPEUTICSMD-2020TMD01962

PATIENT
  Age: 57 Year
  Sex: Female
  Weight: 58.96 kg

DRUGS (2)
  1. BIJUVA [Suspect]
     Active Substance: ESTRADIOL\PROGESTERONE
     Indication: SLEEP DISORDER
  2. BIJUVA [Suspect]
     Active Substance: ESTRADIOL\PROGESTERONE
     Indication: HOT FLUSH
     Dosage: 1 CAPSULES, 1X/DAY
     Route: 048
     Dates: start: 201911, end: 202001

REACTIONS (3)
  - Drug ineffective [Recovered/Resolved]
  - Therapy cessation [Recovered/Resolved]
  - Unevaluable event [Recovered/Resolved]

NARRATIVE: CASE EVENT DATE: 201911
